FAERS Safety Report 8312973-5 (Version None)
Quarter: 2012Q2

REPORT INFORMATION
  Report Type: 
  Country: None (occurrence: None)
  Receive Date: 20120426
  Receipt Date: 20120308
  Transmission Date: 20120825
  Serious: No
  Sender: FDA-Public Use
  Company Number: US-MYLANLABS-2012S1003671

PATIENT
  Age: 61 Year
  Sex: Female

DRUGS (1)
  1. BUPROPION HYDROCHLORIDE [Suspect]
     Indication: DEPRESSION
     Dates: start: 20111201

REACTIONS (3)
  - ASTHENIA [None]
  - SOMNOLENCE [None]
  - DEPRESSED MOOD [None]
